FAERS Safety Report 6259172-9 (Version None)
Quarter: 2009Q3

REPORT INFORMATION
  Report Type: 
  Country: None (occurrence: None)
  Receive Date: 20090707
  Receipt Date: 20090629
  Transmission Date: 20100115
  Serious: Yes (Other)
  Sender: FDA-Public Use
  Company Number: DK-AVENTIS-200915094GDDC

PATIENT
  Age: 40 Year
  Sex: Female

DRUGS (3)
  1. LANTUS [Suspect]
     Dosage: DOSE: 18-24
     Route: 058
  2. NOVORAPID [Concomitant]
     Dosage: DOSE: VARIABLE DOSAGE
     Route: 058
  3. ACETAMINOPHEN [Concomitant]
     Indication: PAIN
     Route: 048

REACTIONS (4)
  - CONDITION AGGRAVATED [None]
  - DIABETIC RETINOPATHY [None]
  - DRUG EXPOSURE DURING PREGNANCY [None]
  - HYPERTENSION [None]
